FAERS Safety Report 14984970 (Version 1)
Quarter: 2018Q2

REPORT INFORMATION
  Report Type: Spontaneous
  Country: US (occurrence: US)
  Receive Date: 20180518
  Receipt Date: 20180518
  Transmission Date: 20180711
  Serious: Yes (Other)
  Sender: FDA-Public Use
  Company Number: None

PATIENT
  Age: 70 Year
  Sex: Female
  Weight: 92.25 kg

DRUGS (3)
  1. L-THYROXINE [Concomitant]
     Active Substance: LEVOTHYROXINE
  2. OLMESARTAN [Concomitant]
     Active Substance: OLMESARTAN
  3. ESCITALOPRAM 10MG [Suspect]
     Active Substance: ESCITALOPRAM OXALATE
     Indication: ANXIETY
     Dosage: AT BEDTIME
     Route: 048
     Dates: start: 20180424

REACTIONS (3)
  - Visual impairment [None]
  - Therapy change [None]
  - Vision blurred [None]

NARRATIVE: CASE EVENT DATE: 20180425
